FAERS Safety Report 8785082 (Version 3)
Quarter: 2014Q2

REPORT INFORMATION
  Report Type: Report from Study
  Country: US (occurrence: US)
  Receive Date: 20120914
  Receipt Date: 20140411
  Transmission Date: 20141212
  Serious: Yes (Hospitalization)
  Sender: FDA-Public Use
  Company Number: US-ACTELION-A-NJ2012-71244

PATIENT
  Age: 58 Year
  Sex: Female

DRUGS (3)
  1. TRACLEER [Suspect]
     Indication: PULMONARY HYPERTENSION
     Dosage: 125 MG, BID
     Route: 048
     Dates: start: 20110502
  2. ADCIRCA [Concomitant]
  3. ASPIRIN [Concomitant]

REACTIONS (16)
  - Transfusion [Unknown]
  - Myelofibrosis [Unknown]
  - Splenomegaly [Unknown]
  - Leukocytosis [Unknown]
  - Thrombocytosis [Unknown]
  - Flank pain [Unknown]
  - Cardiogenic shock [Recovered/Resolved]
  - Hypotension [Recovered/Resolved]
  - Septic shock [Recovered/Resolved]
  - Renal failure acute [Recovered/Resolved]
  - Haemodialysis [Recovered/Resolved]
  - Respiratory failure [Recovered/Resolved]
  - Endotracheal intubation [Recovered/Resolved]
  - Pain in extremity [Recovered/Resolved]
  - Peripheral swelling [Not Recovered/Not Resolved]
  - Dizziness [Unknown]
